FAERS Safety Report 8565372-5 (Version None)
Quarter: 2012Q3

REPORT INFORMATION
  Report Type: 
  Country: None (occurrence: None)
  Receive Date: 20120724
  Receipt Date: 20120710
  Transmission Date: 20120928
  Serious: Yes (Hospitalization)
  Sender: FDA-Public Use
  Company Number: ACO_31154_2012

PATIENT
  Age: 76 Year
  Sex: Male

DRUGS (5)
  1. FAMPYRA (DALFAMPRIDINE) TABLET, 10MG [Suspect]
     Indication: SECONDARY PROGRESSIVE MULTIPLE SCLEROSIS
     Dosage: BID, ORAL
     Route: 048
     Dates: start: 20111108, end: 20120426
  2. TRIMIPRAMINE MALEATE [Concomitant]
  3. SIMVASTATIN [Concomitant]
  4. RAMIPRIL [Concomitant]
  5. LEVOTHYROXINE SODIUM [Concomitant]

REACTIONS (1)
  - GRAND MAL CONVULSION [None]
